FAERS Safety Report 5883908-X (Version None)
Quarter: 2008Q3

REPORT INFORMATION
  Report Type: 
  Country: None (occurrence: None)
  Receive Date: 20080915
  Receipt Date: 20080910
  Transmission Date: 20090109
  Serious: Yes (Hospitalization)
  Sender: FDA-Public Use
  Company Number: B0475339A

PATIENT
  Age: 48 Year
  Sex: Female

DRUGS (4)
  1. ZIAGEN [Suspect]
     Indication: HIV INFECTION
     Route: 048
     Dates: start: 20060505, end: 20070510
  2. VIREAD [Suspect]
     Indication: HIV INFECTION
     Route: 048
     Dates: start: 20060530, end: 20070510
  3. REYATAZ [Suspect]
     Indication: HIV INFECTION
     Route: 048
     Dates: start: 20060706, end: 20070510
  4. DESLORATADINE [Concomitant]
     Route: 065
     Dates: start: 20070301

REACTIONS (7)
  - ASTHENIA [None]
  - BLOOD PHOSPHORUS INCREASED [None]
  - GAMMA-GLUTAMYLTRANSFERASE INCREASED [None]
  - HEPATITIS [None]
  - JAUNDICE [None]
  - PROTHROMBIN LEVEL DECREASED [None]
  - TRANSAMINASES INCREASED [None]
